FAERS Safety Report 7233086-X (Version None)
Quarter: 2011Q1

REPORT INFORMATION
  Report Type: 
  Country: None (occurrence: None)
  Receive Date: 20110119
  Receipt Date: 20110111
  Transmission Date: 20110831
  Serious: Yes (Other)
  Sender: FDA-Public Use
  Company Number: KR-PFIZER INC-2011006386

PATIENT
  Age: 61 Year
  Sex: Male

DRUGS (2)
  1. VIAGRA [Suspect]
     Indication: ERECTILE DYSFUNCTION
     Dosage: A HALF OF 100 MG
     Route: 048
  2. VIAGRA [Suspect]
     Dosage: ONE FIFTH OF 100 MG
     Route: 048
     Dates: start: 20070101

REACTIONS (5)
  - DRUG EFFECT DECREASED [None]
  - PALPITATIONS [None]
  - OCULAR HYPERAEMIA [None]
  - VISUAL ACUITY REDUCED [None]
  - FLUSHING [None]
